FAERS Safety Report 4382725-X (Version None)
Quarter: 2004Q2

REPORT INFORMATION
  Report Type: 
  Country: None (occurrence: None)
  Receive Date: 20040616
  Receipt Date: 20040611
  Transmission Date: 20050107
  Serious: Yes (Death)
  Sender: FDA-Public Use
  Company Number: 002#4#2004-00007

PATIENT
  Age: 52 Year
  Sex: Female

DRUGS (3)
  1. CHLORPHENIRAMINE MALEATE AND PHENYLPROPANOLAMINE HCL [Suspect]
     Dosage: ORAL
     Route: 048
  2. DIMETAPP [Suspect]
     Dosage: ORAL
     Route: 048
  3. UNSPECIFIED BLOOD PRESSURE MEDICATION [Concomitant]

REACTIONS (11)
  - ACUTE RESPIRATORY FAILURE [None]
  - AREFLEXIA [None]
  - COMA [None]
  - HAEMORRHAGIC STROKE [None]
  - INTRAVENTRICULAR HAEMORRHAGE [None]
  - LUNG INFECTION PSEUDOMONAL [None]
  - MENTAL STATUS CHANGES [None]
  - MULTI-ORGAN FAILURE [None]
  - PATHOGEN RESISTANCE [None]
  - PNEUMOTHORAX [None]
  - SUBARACHNOID HAEMORRHAGE [None]
